FAERS Safety Report 5266209-2 (Version None)
Quarter: 2007Q1

REPORT INFORMATION
  Report Type: 
  Country: None (occurrence: None)
  Receive Date: 20070315
  Receipt Date: 20070313
  Transmission Date: 20070707
  Serious: Yes (Death, Hospitalization)
  Sender: FDA-Public Use
  Company Number: US-GLAXOSMITHKLINE-A0643055A

PATIENT
  Age: 81 Year
  Sex: Male

DRUGS (14)
  1. ADVAIR DISKUS 100/50 [Suspect]
     Indication: CHRONIC OBSTRUCTIVE PULMONARY DISEASE
     Dosage: 1PUFF TWICE PER DAY
     Route: 055
  2. SPIRIVA [Concomitant]
  3. ACTOS [Concomitant]
  4. FLOMAX [Concomitant]
  5. ZANTAC [Concomitant]
  6. PLETAL [Concomitant]
  7. LIPITOR [Concomitant]
  8. GLIPIZIDE [Concomitant]
  9. AMIODARONE HCL [Concomitant]
  10. NEURONTIN [Concomitant]
  11. ALLEGRA [Concomitant]
  12. ASPIRIN [Concomitant]
  13. VITAMINS [Concomitant]
  14. OXYGEN [Concomitant]

REACTIONS (6)
  - EXOSTOSIS [None]
  - FALL [None]
  - INFECTION [None]
  - MYOCARDIAL ISCHAEMIA [None]
  - NECK INJURY [None]
  - SYNCOPE [None]
